FAERS Safety Report 20035825 (Version 1)
Quarter: 2021Q4

REPORT INFORMATION
  Report Type: Spontaneous
  Country: US (occurrence: US)
  Receive Date: 20211105
  Receipt Date: 20211105
  Transmission Date: 20220304
  Serious: Yes (Life-Threatening, Hospitalization)
  Sender: FDA-Public Use
  Company Number: US-JNJFOC-20211048788

PATIENT
  Age: 26 Year
  Sex: Female
  Weight: 56 kg

DRUGS (1)
  1. TYLENOL [Suspect]
     Active Substance: ACETAMINOPHEN
     Indication: Suicide attempt
     Dosage: TOTAL SINGLE DOSE OF 13000 MG OF TYLENOL ARTHRITIS EXTENDED RELEASE ON 14/DEC/1999
     Route: 048

REACTIONS (5)
  - Suicide attempt [Recovered/Resolved]
  - Intracranial pressure increased [Recovered/Resolved]
  - Staphylococcal infection [Recovered/Resolved]
  - Acute hepatic failure [Recovered/Resolved]
  - Intentional overdose [Recovered/Resolved]
